FAERS Safety Report 21550242 (Version 2)
Quarter: 2023Q1

REPORT INFORMATION
  Report Type: Spontaneous
  Country: US (occurrence: US)
  Receive Date: 20221103
  Receipt Date: 20230127
  Transmission Date: 20230418
  Serious: Yes (Other)
  Sender: FDA-Public Use
  Company Number: US-ELI_LILLY_AND_COMPANY-US202210013380

PATIENT
  Age: 66 Year
  Sex: Male
  Weight: 102.31 kg

DRUGS (1)
  1. MOUNJARO [Suspect]
     Active Substance: TIRZEPATIDE
     Indication: Type 2 diabetes mellitus
     Dosage: 5 MG, WEEKLY (1/W)
     Route: 058

REACTIONS (3)
  - Pancreatitis [Recovered/Resolved]
  - Hepatomegaly [Unknown]
  - Splenomegaly [Unknown]

NARRATIVE: CASE EVENT DATE: 20221025
